FAERS Safety Report 11722764 (Version 1)
Quarter: 2015Q4

REPORT INFORMATION
  Report Type: Spontaneous
  Country: US (occurrence: US)
  Receive Date: 20151111
  Receipt Date: 20151111
  Transmission Date: 20160304
  Serious: No
  Sender: FDA-Public Use
  Company Number: US-TEVA-607714USA

PATIENT
  Sex: Female

DRUGS (15)
  1. COPAXONE [Suspect]
     Active Substance: GLATIRAMER ACETATE
     Indication: MULTIPLE SCLEROSIS
  2. VITAMIN C [Concomitant]
     Active Substance: ASCORBIC ACID
     Route: 065
     Dates: start: 20090324
  3. BACLOFEN. [Concomitant]
     Active Substance: BACLOFEN
     Route: 065
     Dates: start: 20090324
  4. IMITREX [Concomitant]
     Active Substance: SUMATRIPTAN\SUMATRIPTAN SUCCINATE
     Route: 065
     Dates: start: 20090324
  5. VITAMIN D [Concomitant]
     Active Substance: CHOLECALCIFEROL
     Route: 065
     Dates: start: 20090324
  6. SANCTURA [Concomitant]
     Active Substance: TROSPIUM CHLORIDE
     Route: 065
     Dates: start: 20090324
  7. PRADAXA [Concomitant]
     Active Substance: DABIGATRAN ETEXILATE MESYLATE
     Route: 065
     Dates: start: 20090324
  8. CALCIUM [Concomitant]
     Active Substance: CALCIUM
     Route: 065
     Dates: start: 20090324
  9. CRANBERRY. [Concomitant]
     Active Substance: CRANBERRY
     Route: 065
     Dates: start: 20090324
  10. METFORMIN [Concomitant]
     Active Substance: METFORMIN HYDROCHLORIDE
     Route: 065
  11. COLACE [Concomitant]
     Active Substance: DOCUSATE SODIUM
     Route: 065
     Dates: start: 20090324
  12. LIPITOR [Concomitant]
     Active Substance: ATORVASTATIN CALCIUM
     Route: 065
     Dates: start: 20090324
  13. MULTIVITAMIN [Concomitant]
     Active Substance: VITAMINS
     Route: 065
     Dates: start: 20090324
  14. PROAIR HFA [Concomitant]
     Active Substance: ALBUTEROL SULFATE
     Route: 065
     Dates: start: 20090324
  15. TYLENOL [Concomitant]
     Active Substance: ACETAMINOPHEN
     Route: 065
     Dates: start: 20090324

REACTIONS (2)
  - Memory impairment [Unknown]
  - Drug dose omission [Unknown]
